FAERS Safety Report 8231144-4 (Version None)
Quarter: 2012Q1

REPORT INFORMATION
  Report Type: 
  Country: None (occurrence: None)
  Receive Date: 20120323
  Receipt Date: 20120319
  Transmission Date: 20120608
  Serious: Yes (Other)
  Sender: FDA-Public Use
  Company Number: US-PFIZER INC-2012071374

PATIENT
  Sex: Female

DRUGS (3)
  1. IBUPROFEN [Concomitant]
     Dosage: UNK
  2. LYRICA [Suspect]
     Indication: SCIATICA
     Dosage: 75 MG, 3X/DAY
     Route: 048
     Dates: start: 20110101
  3. SUBOXONE [Concomitant]
     Dosage: UNK

REACTIONS (3)
  - SKIN LESION [None]
  - WEIGHT INCREASED [None]
  - DRUG DEPENDENCE [None]
